FAERS Safety Report 8770339 (Version 1)
Quarter: 2012Q4

REPORT INFORMATION
  Report Type: 
  Country: PH (occurrence: PH)
  Receive Date: 20120906
  Receipt Date: 20120906
  Transmission Date: 20130627
  Serious: Yes (Death)
  Sender: FDA-Public Use
  Company Number: PH-BAXTER-2012BAX015542

PATIENT
  Sex: Female

DRUGS (21)
  1. DIANEAL PD2 WITH 4.25% DEXTROSE [Suspect]
     Indication: AUTOMATED PERITONEAL DIALYSIS
     Route: 033
     Dates: start: 20120825, end: 20120826
  2. NEXIUM [Concomitant]
     Indication: DRUG USE FOR UNKNOWN INDICATION
     Route: 065
  3. TRIMETAZIDINE [Concomitant]
     Indication: DRUG USE FOR UNKNOWN INDICATION
     Route: 065
  4. SEVELAMER [Concomitant]
     Indication: DRUG USE FOR UNKNOWN INDICATION
     Route: 065
  5. RECORMON [Concomitant]
     Indication: DRUG USE FOR UNKNOWN INDICATION
     Route: 058
  6. VESSEL DUE [Concomitant]
     Indication: DRUG USE FOR UNKNOWN INDICATION
     Route: 065
  7. LIPITOR [Concomitant]
     Indication: DRUG USE FOR UNKNOWN INDICATION
     Route: 065
  8. CALCITRIOL [Concomitant]
     Indication: DRUG USE FOR UNKNOWN INDICATION
     Route: 065
  9. CONZACE [Concomitant]
     Indication: DRUG USE FOR UNKNOWN INDICATION
     Route: 065
  10. CLOPIDOGREL [Concomitant]
     Indication: DRUG USE FOR UNKNOWN INDICATION
     Route: 065
  11. ASPIRIN [Concomitant]
     Indication: DRUG USE FOR UNKNOWN INDICATION
     Route: 065
  12. LACTULOSE [Concomitant]
     Indication: DRUG USE FOR UNKNOWN INDICATION
     Route: 065
  13. CLEXANE [Concomitant]
     Indication: DRUG USE FOR UNKNOWN INDICATION
     Dosage: 0.4 cc
     Route: 058
  14. ISELPIN [Concomitant]
     Indication: DRUG USE FOR UNKNOWN INDICATION
     Route: 065
  15. ISOKET [Concomitant]
     Indication: DRUG USE FOR UNKNOWN INDICATION
     Dosage: 20mg IN 90ml NORMAL SALINE SOLUTION
     Route: 041
  16. DOBUTAMINE [Concomitant]
     Indication: DRUG USE FOR UNKNOWN INDICATION
     Dosage: 4 VIALS IN 5% DEXTROSE SOLUTION
     Route: 041
  17. DOPAMINE [Concomitant]
     Indication: DRUG USE FOR UNKNOWN INDICATION
     Dosage: 4 AMPOULES IN 5% DEXTROSE SOLUTION
     Route: 041
  18. MORPHINE SULFATE [Concomitant]
     Indication: CHEST PAIN
     Route: 042
  19. DOLCET [Concomitant]
     Indication: PAIN
     Route: 065
  20. LANTUS [Concomitant]
     Indication: DRUG USE FOR UNKNOWN INDICATION
     Route: 058
  21. JANUVIA [Concomitant]
     Indication: DRUG USE FOR UNKNOWN INDICATION
     Route: 065

REACTIONS (1)
  - Cardiogenic shock [Fatal]
